FAERS Safety Report 5612104-6 (Version None)
Quarter: 2008Q1

REPORT INFORMATION
  Report Type: 
  Country: None (occurrence: None)
  Receive Date: 20080204
  Receipt Date: 20080131
  Transmission Date: 20080703
  Serious: Yes (Other)
  Sender: FDA-Public Use
  Company Number: US-BRISTOL-MYERS SQUIBB COMPANY-14061311

PATIENT
  Age: 81 Year
  Sex: Female
  Weight: 63 kg

DRUGS (3)
  1. WARFARIN SODIUM [Suspect]
     Dosage: 1.25MG-5 YEARS;RECENT REGIMN-2.5MG;(1.25MG)12JAN08;AGAIN 2.5MG(DATE UNK);BACK TO 1.25MG-DATE UNK
     Route: 048
  2. DILTIAZEM HCL [Concomitant]
  3. LIPITOR [Concomitant]

REACTIONS (5)
  - CHEST PAIN [None]
  - DISCOMFORT [None]
  - GINGIVAL BLEEDING [None]
  - HEART RATE IRREGULAR [None]
  - VAGINAL HAEMORRHAGE [None]
